FAERS Safety Report 18947188 (Version 1)
Quarter: 2021Q1

REPORT INFORMATION
  Report Type: Report from Study
  Country: US (occurrence: US)
  Receive Date: 20210227
  Receipt Date: 20210227
  Transmission Date: 20210420
  Serious: No
  Sender: FDA-Public Use
  Company Number: NVSC2021US038780

PATIENT
  Sex: Female

DRUGS (2)
  1. COSENTYX [Suspect]
     Active Substance: SECUKINUMAB
     Indication: PITYRIASIS ROSEA
  2. COSENTYX [Suspect]
     Active Substance: SECUKINUMAB
     Indication: PSORIASIS
     Dosage: 300 MG, QW (WEEKS 0, 1, 2, 3 AND 4. THEN ONCE EVERY 4 WEEKS THEREAFTER)
     Route: 058

REACTIONS (4)
  - Psoriasis [Unknown]
  - Product use in unapproved indication [Unknown]
  - Swelling [Unknown]
  - Skin exfoliation [Unknown]
